FAERS Safety Report 4909452-1 (Version None)
Quarter: 2006Q1

REPORT INFORMATION
  Report Type: 
  Country: None (occurrence: None)
  Receive Date: 20060213
  Receipt Date: 20050318
  Transmission Date: 20060701
  Serious: Yes (Hospitalization, Disabling)
  Sender: FDA-Public Use
  Company Number: US-MERCK-0503USA03824

PATIENT
  Age: 48 Year
  Sex: Female
  Weight: 83 kg

DRUGS (7)
  1. VIOXX [Suspect]
     Indication: NECK PAIN
     Route: 048
     Dates: start: 20010208, end: 20031217
  2. VIOXX [Suspect]
     Indication: ABDOMINAL PAIN UPPER
     Route: 048
     Dates: start: 20010208, end: 20031217
  3. AMBIEN [Concomitant]
     Route: 065
  4. LISINOPRIL [Concomitant]
     Route: 065
  5. HYZAAR [Concomitant]
     Route: 048
  6. IBUPROFEN [Concomitant]
     Route: 065
  7. BIOFREEZE [Concomitant]
     Route: 065

REACTIONS (5)
  - CEREBROVASCULAR ACCIDENT [None]
  - GASTRIC DISORDER [None]
  - INJURY [None]
  - INTERVERTEBRAL DISC PROTRUSION [None]
  - NECK MASS [None]
